FAERS Safety Report 8522089-0 (Version None)
Quarter: 2012Q3

REPORT INFORMATION
  Report Type: 
  Country: None (occurrence: None)
  Receive Date: 20120719
  Receipt Date: 20120717
  Transmission Date: 20120928
  Serious: Yes (Other)
  Sender: FDA-Public Use
  Company Number: US-PFIZER INC-2012140974

PATIENT
  Sex: Female
  Weight: 145.13 kg

DRUGS (3)
  1. LEVOTHYROXINE SODIUM [Suspect]
     Indication: HYPOTHYROIDISM
     Dosage: 50 UG, DAILY
  2. LYRICA [Suspect]
     Indication: ARTHRALGIA
     Dosage: 150 MG, 2X/DAY
     Route: 048
  3. LYRICA [Suspect]
     Indication: FIBROMYALGIA
     Dosage: 75 MG, 2X/DAY
     Route: 048
     Dates: start: 20000101

REACTIONS (7)
  - UTERINE LEIOMYOMA [None]
  - OVARIAN CYST [None]
  - ENDOMETRIOSIS [None]
  - THYROID DISORDER [None]
  - ADHESION [None]
  - NEOPLASM [None]
  - WEIGHT INCREASED [None]
